FAERS Safety Report 6682992-3 (Version None)
Quarter: 2010Q2

REPORT INFORMATION
  Report Type: 
  Country: None (occurrence: None)
  Receive Date: 20100413
  Receipt Date: 20100329
  Transmission Date: 20101027
  Serious: Yes (Death, Hospitalization)
  Sender: FDA-Public Use
  Company Number: 2009AL004466

PATIENT
  Age: 10 Day
  Sex: Male

DRUGS (1)
  1. FLUOXETINE [Suspect]
     Indication: DRUG EXPOSURE DURING PREGNANCY
     Dosage: 20 MG/5ML
     Route: 063

REACTIONS (4)
  - CARDIOVASCULAR DISORDER [None]
  - CEREBRAL DISORDER [None]
  - DRUG EXPOSURE VIA BREAST MILK [None]
  - NEONATAL ANOXIA [None]
